FAERS Safety Report 6543754-0 (Version None)
Quarter: 2010Q1

REPORT INFORMATION
  Report Type: 
  Country: None (occurrence: None)
  Receive Date: 20100119
  Receipt Date: 20100119
  Transmission Date: 20100710
  Serious: Yes (Other)
  Sender: FDA-Public Use
  Company Number: None

PATIENT
  Age: 25 Year
  Sex: Female
  Weight: 68.0396 kg

DRUGS (2)
  1. TYLENOL (CAPLET) [Suspect]
     Indication: HEADACHE
     Dosage: 2 X 500 MG GELCAPS EVERY 4 HOURS PO
     Route: 048
     Dates: start: 20100112, end: 20100115
  2. TYLENOL (CAPLET) [Suspect]
     Indication: MALAISE
     Dosage: 2 X 500 MG GELCAPS EVERY 4 HOURS PO
     Route: 048
     Dates: start: 20100112, end: 20100115

REACTIONS (2)
  - DIARRHOEA [None]
  - NAUSEA [None]
